FAERS Safety Report 10223763 (Version 2)
Quarter: 2014Q2

REPORT INFORMATION
  Report Type: Spontaneous
  Country: ES (occurrence: ES)
  Receive Date: 20140609
  Receipt Date: 20140612
  Transmission Date: 20141212
  Serious: Yes (Other)
  Sender: FDA-Public Use
  Company Number: ES-009507513-1406ESP000918

PATIENT
  Age: 56 Year
  Sex: Male

DRUGS (5)
  1. PEGINTRON [Suspect]
     Indication: HEPATITIS C
     Dosage: STRENGTH:1.5 MICROGRAM PER KILOGRAM PER WEEK, WEEKLY
     Route: 058
  2. COPEGUS [Suspect]
     Indication: HEPATITIS C
     Dosage: 1000 MG, QD
     Route: 048
  3. COPEGUS [Suspect]
     Dosage: UNK
  4. COPEGUS [Suspect]
     Indication: HEPATITIS C
     Dosage: 600 MG, QW
     Route: 048
  5. VICTRELIS [Suspect]
     Indication: HEPATITIS C
     Route: 048

REACTIONS (8)
  - Haemoglobin abnormal [Unknown]
  - Transfusion [Unknown]
  - Musculoskeletal pain [Unknown]
  - Asthenia [Unknown]
  - Haemoglobin decreased [Unknown]
  - Neutrophil count decreased [Unknown]
  - White blood cell count decreased [Unknown]
  - Platelet count decreased [Unknown]
